FAERS Safety Report 6762518-6 (Version None)
Quarter: 2010Q2

REPORT INFORMATION
  Report Type: 
  Country: None (occurrence: None)
  Receive Date: 20100609
  Receipt Date: 20100525
  Transmission Date: 20101027
  Serious: Yes (Other)
  Sender: FDA-Public Use
  Company Number: FR-AMGEN-US135949

PATIENT
  Sex: Female
  Weight: 89 kg

DRUGS (7)
  1. ETANERCEPT [Suspect]
     Indication: RHEUMATOID ARTHRITIS
     Route: 058
     Dates: start: 20010322, end: 20021003
  2. SULPHASALAZINE [Suspect]
     Indication: RHEUMATOID ARTHRITIS
     Dosage: 2-3 GRAMS AS PER PROTOCOL ADMINISTERED TWICE DAILY
     Route: 048
     Dates: start: 20010322, end: 20021003
  3. NISISCO [Concomitant]
     Route: 048
     Dates: start: 19990101
  4. BROMAZEPAM [Concomitant]
     Route: 048
     Dates: start: 19920101
  5. PRAZOSIN HCL [Concomitant]
     Route: 048
     Dates: start: 20011119
  6. BISOPROLOL [Concomitant]
     Route: 048
     Dates: start: 19950101
  7. LORAZEPAM [Concomitant]
     Route: 048
     Dates: start: 19920101

REACTIONS (1)
  - DEMYELINATING POLYNEUROPATHY [None]
